FAERS Safety Report 13190459 (Version 1)
Quarter: 2017Q1

REPORT INFORMATION
  Report Type: Spontaneous
  Country: US (occurrence: US)
  Receive Date: 20170206
  Receipt Date: 20170206
  Transmission Date: 20170428
  Serious: Yes (Other)
  Sender: FDA-Public Use
  Company Number: US-ELI_LILLY_AND_COMPANY-US201607008318

PATIENT
  Sex: Female

DRUGS (4)
  1. VISTARIL                           /00058402/ [Concomitant]
     Active Substance: HYDROXYZINE HYDROCHLORIDE
     Indication: PRODUCT USED FOR UNKNOWN INDICATION
  2. CYMBALTA [Suspect]
     Active Substance: DULOXETINE HYDROCHLORIDE
     Indication: PRODUCT USED FOR UNKNOWN INDICATION
     Dosage: 60 MG, UNKNOWN
     Route: 065
  3. TRAZODONE [Concomitant]
     Active Substance: TRAZODONE HYDROCHLORIDE
     Indication: PRODUCT USED FOR UNKNOWN INDICATION
  4. CYMBALTA [Suspect]
     Active Substance: DULOXETINE HYDROCHLORIDE
     Dosage: 20 MG, BID
     Route: 065
     Dates: start: 20141119

REACTIONS (32)
  - Dermatitis bullous [Unknown]
  - Paraesthesia [Unknown]
  - Anger [Unknown]
  - Anxiety [Unknown]
  - Sensory disturbance [Unknown]
  - Decreased appetite [Unknown]
  - Balance disorder [Unknown]
  - Headache [Unknown]
  - Confusional state [Unknown]
  - Disturbance in attention [Unknown]
  - Irritability [Unknown]
  - Abdominal discomfort [Unknown]
  - Tinnitus [Unknown]
  - Affect lability [Unknown]
  - Hyperhidrosis [Unknown]
  - Insomnia [Unknown]
  - Pain in extremity [Unknown]
  - Body temperature fluctuation [Unknown]
  - Myalgia [Unknown]
  - Dizziness [Unknown]
  - Suicidal ideation [Unknown]
  - Alopecia [Unknown]
  - Dysphoria [Unknown]
  - Arthralgia [Unknown]
  - Vision blurred [Unknown]
  - Muscular weakness [Unknown]
  - Pruritus [Unknown]
  - Agitation [Unknown]
  - Communication disorder [Unknown]
  - Vertigo [Unknown]
  - Lethargy [Unknown]
  - Drug withdrawal syndrome [Unknown]
